FAERS Safety Report 23930420 (Version 1)
Quarter: 2024Q2

REPORT INFORMATION
  Report Type: Report from Study
  Country: US (occurrence: US)
  Receive Date: 20240602
  Receipt Date: 20240602
  Transmission Date: 20240716
  Serious: Yes (Other)
  Sender: FDA-Public Use
  Company Number: US-ABBVIE-5735543

PATIENT
  Age: 73 Year
  Sex: Female

DRUGS (2)
  1. HUMIRA [Suspect]
     Active Substance: ADALIMUMAB
     Indication: Psoriatic arthropathy
     Dosage: LAST ADMIN DATE- 2016
     Route: 058
     Dates: start: 20160101
  2. HUMIRA [Suspect]
     Active Substance: ADALIMUMAB

REACTIONS (4)
  - Cataract [Not Recovered/Not Resolved]
  - Acrochordon [Recovered/Resolved]
  - Sinusitis [Recovered/Resolved]
  - Eye disorder [Unknown]

NARRATIVE: CASE EVENT DATE: 20240326
